FAERS Safety Report 13740823 (Version 2)
Quarter: 2017Q3

REPORT INFORMATION
  Report Type: Spontaneous
  Country: DE (occurrence: DE)
  Receive Date: 20170711
  Receipt Date: 20170717
  Transmission Date: 20171127
  Serious: Yes (Other)
  Sender: FDA-Public Use
  Company Number: DE-PFIZER INC-2017249589

PATIENT
  Age: 39 Year
  Sex: Male

DRUGS (2)
  1. LOMUSTINE. [Suspect]
     Active Substance: LOMUSTINE
     Indication: MEDULLOBLASTOMA
     Dosage: UNK UNK, CYCLIC
  2. CARBOPLATIN. [Suspect]
     Active Substance: CARBOPLATIN
     Indication: MEDULLOBLASTOMA
     Dosage: UNK UNK, CYCLIC

REACTIONS (2)
  - Deafness [Unknown]
  - Polyneuropathy [Unknown]
